FAERS Safety Report 4611913-X (Version None)
Quarter: 2005Q2

REPORT INFORMATION
  Report Type: 
  Country: None (occurrence: None)
  Receive Date: 20050308
  Receipt Date: 20041215
  Transmission Date: 20051028
  Serious: Yes (Other)
  Sender: FDA-Public Use
  Company Number: 2004UW25472

PATIENT
  Age: 52 Year
  Sex: Male
  Weight: 104.32 kg

DRUGS (1)
  1. CRESTOR [Suspect]
     Indication: BLOOD CHOLESTEROL INCREASED
     Dates: start: 20040801

REACTIONS (3)
  - NAUSEA [None]
  - NIGHT SWEATS [None]
  - TREMOR [None]
